FAERS Safety Report 5185011-3 (Version None)
Quarter: 2006Q4

REPORT INFORMATION
  Report Type: 
  Country: None (occurrence: None)
  Receive Date: 20061220
  Receipt Date: 20060519
  Transmission Date: 20070319
  Serious: No
  Sender: FDA-Public Use
  Company Number: US-GLAXOSMITHKLINE-A0606278A

PATIENT
  Age: 47 Year
  Sex: Female

DRUGS (1)
  1. MEMBERS MARK NTS ORIGINAL, 21MG [Suspect]
     Dates: start: 20060518

REACTIONS (1)
  - BONE PAIN [None]
